FAERS Safety Report 9341559 (Version 1)
Quarter: 2013Q2

REPORT INFORMATION
  Report Type: Spontaneous
  Country: GB (occurrence: None)
  Receive Date: 20130531
  Receipt Date: 20130531
  Transmission Date: 20140414
  Serious: Yes (Other)
  Sender: FDA-Public Use
  Company Number: 2013036164

PATIENT
  Age: 83 Year
  Sex: Female

DRUGS (1)
  1. PRIVIGEN [Suspect]
     Route: 042
     Dates: start: 20130305

REACTIONS (7)
  - Influenza like illness [None]
  - Neck pain [None]
  - Headache [None]
  - Chills [None]
  - Muscle spasms [None]
  - Asthenia [None]
  - Dyspnoea [None]
